FAERS Safety Report 21994785 (Version 4)
Quarter: 2025Q3

REPORT INFORMATION
  Report Type: Report from Study
  Country: CA (occurrence: CA)
  Receive Date: 20230215
  Receipt Date: 20250926
  Transmission Date: 20251021
  Serious: Yes (Other)
  Sender: TAKEDA
  Company Number: CA-TAKEDA-2022TUS087543

PATIENT
  Age: 30 Year
  Sex: Male

DRUGS (6)
  1. VEDOLIZUMAB [Suspect]
     Active Substance: VEDOLIZUMAB
     Indication: Colitis ulcerative
  2. VEDOLIZUMAB [Suspect]
     Active Substance: VEDOLIZUMAB
     Dosage: 300 MILLIGRAM, Q4WEEKS
     Dates: start: 20230417
  3. PENTASA [Concomitant]
     Active Substance: MESALAMINE
  4. Salofalk [Concomitant]
  5. Salofalk [Concomitant]
  6. Cortiment [Concomitant]
     Dosage: 9 MILLIGRAM, QD
     Dates: start: 202204

REACTIONS (3)
  - Colitis ulcerative [Unknown]
  - Abnormal faeces [Unknown]
  - Off label use [Unknown]

NARRATIVE: CASE EVENT DATE: 20230417
